FAERS Safety Report 16797826 (Version 1)
Quarter: 2019Q3

REPORT INFORMATION
  Report Type: Spontaneous
  Country: FR (occurrence: FR)
  Receive Date: 20190912
  Receipt Date: 20190912
  Transmission Date: 20191005
  Serious: Yes (Other)
  Sender: FDA-Public Use
  Company Number: FR-ORION CORPORATION ORION PHARMA-19_00006991

PATIENT
  Age: 14 Year
  Sex: Female
  Weight: 45 kg

DRUGS (3)
  1. IMETH [Suspect]
     Active Substance: METHOTREXATE SODIUM
     Indication: UVEITIS
     Dosage: STRENGTH: 10 MG
     Route: 048
     Dates: start: 20180816
  2. HUMIRA [Suspect]
     Active Substance: ADALIMUMAB
     Indication: UVEITIS
     Dosage: STRENGTH: 40 MG
     Route: 058
     Dates: start: 20180815
  3. SPECIAFOLDINE [Suspect]
     Active Substance: FOLIC ACID
     Indication: VITAMIN SUPPLEMENTATION
     Dosage: STRENGTH: 5 MG
     Route: 048
     Dates: start: 20180818

REACTIONS (3)
  - Keratosis pilaris [Not Recovered/Not Resolved]
  - Product use in unapproved indication [Unknown]
  - Seborrhoeic dermatitis [Not Recovered/Not Resolved]

NARRATIVE: CASE EVENT DATE: 20180816
